FAERS Safety Report 24928366 (Version 1)
Quarter: 2025Q1

REPORT INFORMATION
  Report Type: Spontaneous
  Country: US (occurrence: None)
  Receive Date: 20250204
  Receipt Date: 20250204
  Transmission Date: 20250409
  Serious: Yes (Life-Threatening, Hospitalization)
  Sender: FDA-CTU
  Company Number: None

PATIENT
  Age: 75 Year
  Sex: Male

DRUGS (1)
  1. GADOBUTROL [Suspect]
     Active Substance: GADOBUTROL
     Indication: Magnetic resonance imaging
     Route: 042
     Dates: start: 20250130, end: 20250130

REACTIONS (4)
  - Type IV hypersensitivity reaction [None]
  - Contrast media reaction [None]
  - Anaphylactic reaction [None]
  - Wheezing [None]

NARRATIVE: CASE EVENT DATE: 20250130
